FAERS Safety Report 9483135 (Version 2)
Quarter: 2013Q4

REPORT INFORMATION
  Report Type: Spontaneous
  Country: US (occurrence: US)
  Receive Date: 20130828
  Receipt Date: 20131011
  Transmission Date: 20140711
  Serious: Yes (Hospitalization)
  Sender: FDA-Public Use
  Company Number: US-ASTRAZENECA-2013SE64728

PATIENT
  Age: 68 Year
  Sex: Female
  Weight: 92.5 kg

DRUGS (2)
  1. SYMBICORT [Suspect]
     Indication: ASTHMA
     Dosage: 320 MCG BID
     Route: 055
  2. SYMBICORT [Suspect]
     Indication: ASTHMA
     Dosage: 160/4.5 MCG, TWO PUFFS, BID
     Route: 055

REACTIONS (3)
  - Bronchitis [Recovered/Resolved]
  - Memory impairment [Unknown]
  - Intentional drug misuse [Unknown]
